FAERS Safety Report 21931849 (Version 1)
Quarter: 2023Q1

REPORT INFORMATION
  Report Type: Spontaneous
  Country: GB (occurrence: GB)
  Receive Date: 20230131
  Receipt Date: 20230131
  Transmission Date: 20230417
  Serious: Yes (Other)
  Sender: FDA-Public Use
  Company Number: GB-MYLANLABS-2023M1008746

PATIENT
  Sex: Female

DRUGS (2)
  1. EPIPEN [Suspect]
     Active Substance: EPINEPHRINE
     Indication: Anaphylactic reaction
     Dosage: 300 MICROGRAM
     Route: 065
     Dates: start: 20230123, end: 20230123
  2. EPIPEN [Suspect]
     Active Substance: EPINEPHRINE
     Dosage: 300 MICROGRAM
     Route: 065
     Dates: start: 20230123, end: 20230123

REACTIONS (1)
  - Loss of consciousness [Unknown]

NARRATIVE: CASE EVENT DATE: 20230123
